FAERS Safety Report 24319649 (Version 1)
Quarter: 2024Q3

REPORT INFORMATION
  Report Type: Spontaneous
  Country: CN (occurrence: CN)
  Receive Date: 20240914
  Receipt Date: 20240914
  Transmission Date: 20241017
  Serious: Yes (Life-Threatening)
  Sender: JIANGSU HENGRUI MEDICINE
  Company Number: CN-Jiangsu Hengrui Medicine Co., Ltd.-2161607

PATIENT
  Age: 58 Year
  Sex: Male
  Weight: 68 kg

DRUGS (7)
  1. CISATRACURIUM BESYLATE [Suspect]
     Active Substance: CISATRACURIUM BESYLATE
     Indication: Anaesthesia procedure
  2. MIDAZOLAM [Concomitant]
     Active Substance: MIDAZOLAM
  3. VALSARTAN [Concomitant]
     Active Substance: VALSARTAN
  4. SUFENTANIL [Concomitant]
     Active Substance: SUFENTANIL
  5. ETOMIDATE [Concomitant]
     Active Substance: ETOMIDATE
  6. LIDOCAINE [Concomitant]
     Active Substance: LIDOCAINE
  7. DEZOCINE [Concomitant]
     Active Substance: DEZOCINE

REACTIONS (4)
  - Kounis syndrome [Recovered/Resolved]
  - Cardiac arrest [Recovered/Resolved]
  - Ventricular fibrillation [Recovered/Resolved]
  - Arteriospasm coronary [Recovered/Resolved]
